FAERS Safety Report 11073737 (Version 2)
Quarter: 2015Q3

REPORT INFORMATION
  Report Type: Report from Study
  Country: US (occurrence: US)
  Receive Date: 20150428
  Receipt Date: 20150929
  Transmission Date: 20151125
  Serious: Yes (Hospitalization)
  Sender: FDA-Public Use
  Company Number: US-EXELIXIS-XL18415005370

PATIENT
  Age: 58 Year
  Sex: Male
  Weight: 68 kg

DRUGS (20)
  1. IBUPROFEN. [Concomitant]
     Active Substance: IBUPROFEN
  2. MEGESTROL [Concomitant]
     Active Substance: MEGESTROL
  3. XL184 [Suspect]
     Active Substance: CABOZANTINIB
     Indication: RENAL CELL CARCINOMA
     Dosage: 60 MG, QD
     Route: 048
     Dates: start: 20140805, end: 20150407
  4. ZOPIDEM [Concomitant]
  5. D3 [Concomitant]
     Active Substance: 25-HYDROXYCHOLECALCIFEROL, 5-TRANS-
  6. CALCIUM [Concomitant]
     Active Substance: CALCIUM
  7. OXYCODONE [Concomitant]
     Active Substance: OXYCODONE
  8. SERTRALINE [Concomitant]
     Active Substance: SERTRALINE HYDROCHLORIDE
  9. SUCRALFATE. [Concomitant]
     Active Substance: SUCRALFATE
  10. VITAMIN B12 [Concomitant]
     Active Substance: CYANOCOBALAMIN
  11. AMITRIPTYLINE [Concomitant]
     Active Substance: AMITRIPTYLINE
  12. MODAFINIL. [Concomitant]
     Active Substance: MODAFINIL
  13. ETODOLAC. [Concomitant]
     Active Substance: ETODOLAC
  14. PANTOPRAZOLE [Concomitant]
     Active Substance: PANTOPRAZOLE SODIUM
  15. TRAMADOL. [Concomitant]
     Active Substance: TRAMADOL
  16. XL184 [Suspect]
     Active Substance: CABOZANTINIB
     Dosage: 20 MG, QD
     Route: 048
     Dates: start: 20150519
  17. TAMSULOSIN [Concomitant]
     Active Substance: TAMSULOSIN
  18. TUMS [Concomitant]
     Active Substance: CALCIUM CARBONATE
  19. MIRTAZAPINE. [Concomitant]
     Active Substance: MIRTAZAPINE
  20. DULOXETINE. [Concomitant]
     Active Substance: DULOXETINE

REACTIONS (2)
  - Gastric haemorrhage [Recovered/Resolved]
  - Fall [Recovered/Resolved]

NARRATIVE: CASE EVENT DATE: 20150408
